FAERS Safety Report 24215964 (Version 1)
Quarter: 2024Q3

REPORT INFORMATION
  Report Type: Spontaneous
  Country: US (occurrence: US)
  Receive Date: 20240816
  Receipt Date: 20240816
  Transmission Date: 20241017
  Serious: No
  Sender: ROCHE
  Company Number: US-ROCHE-10000058756

PATIENT
  Sex: Male

DRUGS (2)
  1. XOLAIR PFS [Suspect]
     Active Substance: OMALIZUMAB
     Indication: Asthma
     Route: 058
     Dates: start: 202403
  2. XOLAIR PFS [Suspect]
     Active Substance: OMALIZUMAB
     Indication: Asthma

REACTIONS (2)
  - Drug ineffective [Unknown]
  - No adverse event [Unknown]
